FAERS Safety Report 11828297 (Version 3)
Quarter: 2016Q1

REPORT INFORMATION
  Report Type: Report from Study
  Country: JP (occurrence: JP)
  Receive Date: 20151211
  Receipt Date: 20160204
  Transmission Date: 20160525
  Serious: Yes (Hospitalization)
  Sender: FDA-Public Use
  Company Number: JP-EISAI MEDICAL RESEARCH-EC-2015-012584

PATIENT
  Age: 78 Year
  Sex: Male

DRUGS (8)
  1. FLUITRAN [Concomitant]
     Active Substance: TRICHLORMETHIAZIDE
  2. TAKEPRON [Concomitant]
     Active Substance: LANSOPRAZOLE
  3. BLOPRESS [Concomitant]
     Active Substance: CANDESARTAN CILEXETIL
  4. PROMAC [Concomitant]
     Active Substance: NITROFURANTOIN
  5. TERBINAFINE. [Concomitant]
     Active Substance: TERBINAFINE
  6. PURSENNID [Concomitant]
     Active Substance: SENNOSIDES A AND B
  7. DEPAS [Concomitant]
     Active Substance: ETIZOLAM
  8. ARICEPT [Suspect]
     Active Substance: DONEPEZIL HYDROCHLORIDE
     Indication: DEMENTIA ALZHEIMER^S TYPE
     Route: 048
     Dates: start: 20140421, end: 20150103

REACTIONS (1)
  - Restlessness [Recovering/Resolving]

NARRATIVE: CASE EVENT DATE: 201408
